FAERS Safety Report 5440451-X (Version None)
Quarter: 2007Q3

REPORT INFORMATION
  Report Type: 
  Country: None (occurrence: None)
  Receive Date: 20070831
  Receipt Date: 20070829
  Transmission Date: 20080115
  Serious: Yes (Hospitalization)
  Sender: FDA-Public Use
  Company Number: FR-ELI_LILLY_AND_COMPANY-FR200706004046

PATIENT
  Age: 94 Year
  Sex: Female
  Weight: 53 kg

DRUGS (7)
  1. FORTEO [Suspect]
     Indication: OSTEOPOROSIS
     Dosage: 20 UG, DAILY (1/D)
     Route: 058
     Dates: start: 20070307, end: 20070418
  2. FORTEO [Suspect]
     Dosage: 20 UG, DAILY (1/D)
     Route: 058
     Dates: start: 20070813
  3. AMLODIPINE BESYLATE [Concomitant]
     Indication: HYPERTENSION
     Dosage: 5 MG, UNK
     Route: 048
  4. COTRIATEC [Concomitant]
     Indication: HYPERTENSION
     Dosage: 1 D/F, DAILY (1/D)
     Route: 048
  5. FERO GRAD LP VITAMINE C [Concomitant]
     Indication: DEFICIENCY ANAEMIA
     Dosage: 1 D/F, DAILY (1/D)
     Route: 048
  6. CORDIPATCH [Concomitant]
     Indication: CORONARY ARTERY INSUFFICIENCY
     Dosage: 10 MG, DAILY (1/D)
     Route: 062
  7. EPTAVIT [Concomitant]
     Indication: OSTEOPOROSIS
     Dosage: 1 D/F, DAILY (1/D)
     Route: 048

REACTIONS (2)
  - FALL [None]
  - FEMUR FRACTURE [None]
